FAERS Safety Report 8515093-X (Version None)
Quarter: 2012Q3

REPORT INFORMATION
  Report Type: 
  Country: None (occurrence: None)
  Receive Date: 20120717
  Receipt Date: 20120710
  Transmission Date: 20120928
  Serious: Yes (Other)
  Sender: FDA-Public Use
  Company Number: US-JNJFOC-20120706193

PATIENT
  Sex: Female
  Weight: 111.13 kg

DRUGS (6)
  1. NUCYNTA [Suspect]
     Dosage: 100 MG EVERY 6 HOURS
     Route: 048
     Dates: start: 20120501
  2. NUCYNTA [Suspect]
     Indication: SPINAL PAIN
     Dosage: 75 MG EVERY 6 HOURS
     Route: 048
     Dates: start: 20100101, end: 20120501
  3. NUCYNTA [Suspect]
     Indication: NECK PAIN
     Dosage: 75 MG EVERY 6 HOURS
     Route: 048
     Dates: start: 20100101, end: 20120501
  4. NUCYNTA [Suspect]
     Dosage: 100 MG EVERY 6 HOURS
     Route: 048
     Dates: start: 20120501
  5. NUCYNTA [Suspect]
     Indication: BACK PAIN
     Dosage: 100 MG EVERY 6 HOURS
     Route: 048
     Dates: start: 20120501
  6. NUCYNTA [Suspect]
     Dosage: 75 MG EVERY 6 HOURS
     Route: 048
     Dates: start: 20100101, end: 20120501

REACTIONS (4)
  - MENISCUS LESION [None]
  - NERVOUSNESS [None]
  - PAIN [None]
  - THERAPEUTIC RESPONSE UNEXPECTED [None]
